FAERS Safety Report 25446122 (Version 1)
Quarter: 2025Q2

REPORT INFORMATION
  Report Type: Spontaneous
  Country: CH (occurrence: CH)
  Receive Date: 20250617
  Receipt Date: 20250617
  Transmission Date: 20250716
  Serious: Yes (Hospitalization, Other)
  Sender: PFIZER
  Company Number: CH-PFIZER INC-PV202500070692

PATIENT
  Age: 16 Year
  Sex: Female

DRUGS (4)
  1. RITUXIMAB [Suspect]
     Active Substance: RITUXIMAB
     Indication: Myelin oligodendrocyte glycoprotein antibody-associated disease
  2. RITUXIMAB [Suspect]
     Active Substance: RITUXIMAB
  3. PNEUMOCOCCAL VACCINE POLYVALENT NOS [Concomitant]
     Active Substance: PNEUMOCOCCAL VACCINE, POLYVALENT
     Indication: Pneumococcal infection
  4. COVID-19 VACCINE [Concomitant]
     Indication: COVID-19 immunisation

REACTIONS (7)
  - Immunodeficiency [Unknown]
  - Upper respiratory tract infection [Unknown]
  - COVID-19 [Unknown]
  - Respiratory tract infection [Unknown]
  - Pneumonia pneumococcal [Unknown]
  - Pneumonia mycoplasmal [Unknown]
  - Off label use [Unknown]
